FAERS Safety Report 9945731 (Version 1)
Quarter: 2014Q1

REPORT INFORMATION
  Report Type: Report from Study
  Country: US (occurrence: US)
  Receive Date: 20140303
  Receipt Date: 20140303
  Transmission Date: 20141002
  Serious: No
  Sender: FDA-Public Use
  Company Number: US-ABBVIE-13P-163-1055514-00

PATIENT
  Age: 36 Year
  Sex: Female

DRUGS (8)
  1. HUMIRA [Suspect]
     Indication: PSORIATIC ARTHROPATHY
     Route: 058
     Dates: start: 201212
  2. NAPROXEN [Concomitant]
     Indication: PAIN
  3. BIRTH CONTROL PILLS [Concomitant]
     Indication: POLYCYSTIC OVARIES
     Dosage: PILL
  4. SPIRONOLACTONE [Concomitant]
     Indication: POLYCYSTIC OVARIES
  5. POTASSIUM GLUCONATE [Concomitant]
     Indication: ELECTROLYTE SUBSTITUTION THERAPY
  6. ZINC [Concomitant]
     Indication: PRODUCT USED FOR UNKNOWN INDICATION
  7. OMEGA 3 [Concomitant]
     Indication: PRODUCT USED FOR UNKNOWN INDICATION
  8. FOLBEE PLUS [Concomitant]
     Indication: PRODUCT USED FOR UNKNOWN INDICATION

REACTIONS (2)
  - Injection site bruising [Not Recovered/Not Resolved]
  - Injection site haemorrhage [Unknown]
